FAERS Safety Report 20303229 (Version 2)
Quarter: 2022Q1

REPORT INFORMATION
  Report Type: Spontaneous
  Country: FR (occurrence: FR)
  Receive Date: 20220106
  Receipt Date: 20220127
  Transmission Date: 20220423
  Serious: Yes (Death)
  Sender: FDA-Public Use
  Company Number: None

PATIENT
  Age: 52 Year
  Sex: Female
  Weight: 74 kg

DRUGS (2)
  1. TAMOXIFEN [Suspect]
     Active Substance: TAMOXIFEN
     Indication: Breast cancer
     Dosage: UNKNOWN , TAMOXIFENE BASE , THERAPY END DATE : ASKU
     Route: 048
     Dates: start: 2020
  2. SPIKEVAX [Suspect]
     Active Substance: ELASOMERAN
     Indication: COVID-19 immunisation
     Dosage: D2 , UNIT DOSE : 1 DF , DISPERSION FOR INJECTION. COVID-19 MRNA (MODIFIED NUCLEOSIDE) VACCINE
     Route: 030
     Dates: start: 20210619, end: 20210619

REACTIONS (1)
  - Pancreatitis [Fatal]

NARRATIVE: CASE EVENT DATE: 20210804
